FAERS Safety Report 18889345 (Version 1)
Quarter: 2021Q1

REPORT INFORMATION
  Report Type: Spontaneous
  Country: CN (occurrence: CN)
  Receive Date: 20210213
  Receipt Date: 20210213
  Transmission Date: 20210420
  Serious: Yes (Death, Hospitalization, Other)
  Sender: FDA-Public Use
  Company Number: CN-SA-2021SA044812

PATIENT
  Age: 30 Year
  Sex: Male

DRUGS (11)
  1. LACTULOSE. [Concomitant]
     Active Substance: LACTULOSE
     Indication: GASTROINTESTINAL INFLAMMATION
     Dosage: 45?50 ML PER DAY
  2. ELTROMBOPAG [Concomitant]
     Active Substance: ELTROMBOPAG
     Indication: APLASTIC ANAEMIA
     Dosage: 25 MG, QD
  3. INULIN [Concomitant]
     Active Substance: INULIN
     Indication: GASTROINTESTINAL INFLAMMATION
     Dosage: 15?20 G PER DAY
  4. PROBIOTICS NOS [Concomitant]
     Active Substance: PROBIOTICS NOS
     Indication: GASTROINTESTINAL INFLAMMATION
  5. RIFAMPICIN [Suspect]
     Active Substance: RIFAMPIN
     Indication: GASTROINTESTINAL INFLAMMATION
     Dosage: 450 MG, QD
  6. POLYETHYLENE GLYCOL ELECTROLYTES POWDER (2) [Suspect]
     Active Substance: POLYETHYLENE GLYCOL 4000\POTASSIUM CHLORIDE\SODIUM BICARBONATE\SODIUM CHLORIDE\SODIUM SULFATE
     Indication: GASTROINTESTINAL INFLAMMATION
     Dosage: UNK UNK, QM; 1500 ML POLYETHYLENE GLYCOL ELECTROLYTE SOLUTION PER DAY FOR 2 D
  7. STANOZOLOL [Concomitant]
     Active Substance: STANOZOLOL
     Indication: APLASTIC ANAEMIA
     Dosage: 2 MG, TID
  8. RECOMBINANT HUMAN GRANULOCYTE COLONY STIMULATING FACTOR [Concomitant]
     Active Substance: GRANULOCYTE COLONY-STIMULATING FACTOR NOS
     Dosage: UNK; TAPERED DOSE
  9. CYCLOSPORINE. [Concomitant]
     Active Substance: CYCLOSPORINE
     Indication: APLASTIC ANAEMIA
     Dosage: 125 MG, BID
  10. BERBERINE [Suspect]
     Active Substance: BERBERINE
     Indication: GASTROINTESTINAL INFLAMMATION
     Dosage: 0.3 G, TID
  11. RECOMBINANT HUMAN GRANULOCYTE COLONY STIMULATING FACTOR [Concomitant]
     Active Substance: GRANULOCYTE COLONY-STIMULATING FACTOR NOS
     Indication: APLASTIC ANAEMIA
     Dosage: 100 UG, BID

REACTIONS (16)
  - Dizziness [Not Recovered/Not Resolved]
  - Abdominal tenderness [Not Recovered/Not Resolved]
  - Fatigue [Not Recovered/Not Resolved]
  - Multiple organ dysfunction syndrome [Not Recovered/Not Resolved]
  - Myeloproliferative neoplasm [Not Recovered/Not Resolved]
  - White blood cell count decreased [Not Recovered/Not Resolved]
  - Haemoglobin decreased [Not Recovered/Not Resolved]
  - Platelet count decreased [Not Recovered/Not Resolved]
  - Anxiety [Not Recovered/Not Resolved]
  - Systemic inflammatory response syndrome [Not Recovered/Not Resolved]
  - Abdominal pain [Not Recovered/Not Resolved]
  - Pallor [Not Recovered/Not Resolved]
  - Contusion [Not Recovered/Not Resolved]
  - Septic shock [Fatal]
  - Gastrointestinal disorder [Not Recovered/Not Resolved]
  - Abdominal distension [Not Recovered/Not Resolved]
